FAERS Safety Report 6077152-3 (Version None)
Quarter: 2009Q1

REPORT INFORMATION
  Report Type: 
  Country: None (occurrence: None)
  Receive Date: 20090121
  Receipt Date: 20071130
  Transmission Date: 20090719
  Serious: Yes (Hospitalization, Disabling)
  Sender: FDA-Public Use
  Company Number: HQWYE904627JAN05

PATIENT
  Age: 52 Year
  Sex: Female
  Weight: 83.99 kg

DRUGS (1)
  1. PREMPRO [Suspect]

REACTIONS (1)
  - CEREBROVASCULAR ACCIDENT [None]
